FAERS Safety Report 6157017-9 (Version None)
Quarter: 2009Q2

REPORT INFORMATION
  Report Type: 
  Country: None (occurrence: None)
  Receive Date: 20090416
  Receipt Date: 20090410
  Transmission Date: 20091009
  Serious: Yes (Hospitalization)
  Sender: FDA-Public Use
  Company Number: IN-BRISTOL-MYERS SQUIBB COMPANY-14580112

PATIENT
  Age: 47 Year
  Sex: Female

DRUGS (2)
  1. IXABEPILONE [Suspect]
     Indication: BREAST CANCER
     Dosage: 1 DF = 62 (UNITS NOT SPECIFIED).
     Route: 042
     Dates: start: 20090326, end: 20090326
  2. AUGMENTIN '125' [Concomitant]
     Dosage: CAP.
     Dates: start: 20090403

REACTIONS (5)
  - COUGH [None]
  - METABOLIC ENCEPHALOPATHY [None]
  - MYALGIA [None]
  - PNEUMONIA [None]
  - SOMNOLENCE [None]
